FAERS Safety Report 6388663-5 (Version None)
Quarter: 2009Q4

REPORT INFORMATION
  Report Type: 
  Country: None (occurrence: None)
  Receive Date: 20091001
  Receipt Date: 20091001
  Transmission Date: 20100525
  Serious: Yes (Other)
  Sender: FDA-Public Use
  Company Number: None

PATIENT
  Sex: Female
  Weight: 72.5755 kg

DRUGS (1)
  1. ZOLOFT [Suspect]
     Indication: DEPRESSION
     Dosage: 50 MG ONCE DAILY PO
     Route: 048
     Dates: start: 20090911, end: 20090913

REACTIONS (8)
  - ASTHENIA [None]
  - DECREASED APPETITE [None]
  - DIARRHOEA [None]
  - ELECTRIC SHOCK [None]
  - EYE PAIN [None]
  - HYPOTONIA [None]
  - MYDRIASIS [None]
  - PHOTOPHOBIA [None]
